FAERS Safety Report 6215545-1 (Version None)
Quarter: 2009Q2

REPORT INFORMATION
  Report Type: 
  Country: None (occurrence: None)
  Receive Date: 20090605
  Receipt Date: 20070514
  Transmission Date: 20091009
  Serious: Yes (Other)
  Sender: FDA-Public Use
  Company Number: US-ASTRAZENECA-2006UW25675

PATIENT
  Age: 18637 Day
  Sex: Male
  Weight: 88.9 kg

DRUGS (23)
  1. SEROQUEL [Suspect]
     Indication: DEPRESSION
     Route: 048
     Dates: start: 20070712
  2. SEROQUEL [Suspect]
     Indication: HALLUCINATION, AUDITORY
     Route: 048
     Dates: start: 20070712
  3. SEROQUEL [Suspect]
     Dosage: 400 MG - 800 MG
     Route: 048
     Dates: start: 20060221
  4. SEROQUEL [Suspect]
     Dosage: 400 MG - 800 MG
     Route: 048
     Dates: start: 20060221
  5. SEROQUEL [Suspect]
     Route: 048
     Dates: start: 20051017
  6. SEROQUEL [Suspect]
     Route: 048
     Dates: start: 20051017
  7. SEROQUEL [Suspect]
     Dosage: 200MG TO 800MG
     Route: 048
     Dates: start: 20051001
  8. SEROQUEL [Suspect]
     Dosage: 200MG TO 800MG
     Route: 048
     Dates: start: 20051001
  9. RISPERDAL [Concomitant]
     Dates: start: 20051020
  10. PAXIL [Concomitant]
     Route: 048
     Dates: start: 20060515
  11. PAXIL [Concomitant]
     Dosage: 10 MG - 20 MG
     Route: 048
     Dates: start: 20060320
  12. METFORMIN HYDROCHLORIDE [Concomitant]
     Dates: start: 20060719
  13. TENORMIN [Concomitant]
     Dates: start: 20050916
  14. NIFEDIPINE [Concomitant]
     Dates: start: 20051026
  15. IBUPROFEN [Concomitant]
     Route: 048
     Dates: start: 20061117
  16. LASIX [Concomitant]
     Route: 048
     Dates: start: 20070328
  17. LIPITOR [Concomitant]
     Route: 048
     Dates: start: 20070328
  18. FERROUS SULFATE TAB [Concomitant]
     Dates: start: 20050902
  19. REMERON [Concomitant]
     Route: 048
     Dates: start: 20050908
  20. REMERON [Concomitant]
     Route: 048
     Dates: start: 20060221
  21. CHLORPHENTERMINE 65MG TAB [Concomitant]
     Dates: start: 20050902
  22. DIPHENHYDRAMINE HCL [Concomitant]
     Route: 048
     Dates: start: 20050824
  23. DIPHENHYDRAMINE HCL [Concomitant]
     Route: 048
     Dates: start: 20060313

REACTIONS (4)
  - DIABETIC NEPHROPATHY [None]
  - INSULIN-REQUIRING TYPE 2 DIABETES MELLITUS [None]
  - TYPE 1 DIABETES MELLITUS [None]
  - TYPE 2 DIABETES MELLITUS [None]
